FAERS Safety Report 7206654-9 (Version None)
Quarter: 2010Q4

REPORT INFORMATION
  Report Type: 
  Country: None (occurrence: None)
  Receive Date: 20101217
  Receipt Date: 20101203
  Transmission Date: 20110411
  Serious: Yes (Other)
  Sender: FDA-Public Use
  Company Number: 8028504

PATIENT
  Age: 35 Year
  Sex: Female

DRUGS (7)
  1. KEPPRA [Suspect]
     Indication: EPILEPSY
     Dosage: (2000 MG   QD,  DAILY ORAL), (2500 MG QD, DAILY  DAILY ORAL), (1500 MG BID ORAL)
     Route: 048
     Dates: start: 20051101, end: 20070117
  2. KEPPRA [Suspect]
     Indication: EPILEPSY
     Dosage: (2000 MG   QD,  DAILY ORAL), (2500 MG QD, DAILY  DAILY ORAL), (1500 MG BID ORAL)
     Route: 048
     Dates: start: 20070118, end: 20070306
  3. KEPPRA [Suspect]
     Indication: EPILEPSY
     Dosage: (2000 MG   QD,  DAILY ORAL), (2500 MG QD, DAILY  DAILY ORAL), (1500 MG BID ORAL)
     Route: 048
     Dates: start: 20070307
  4. LAMICTAL [Concomitant]
  5. ALDOMET [Concomitant]
  6. LEVOTHROID [Concomitant]
  7. FOLIC ACID [Concomitant]

REACTIONS (2)
  - DRUG EXPOSURE DURING PREGNANCY [None]
  - GESTATIONAL DIABETES [None]
